FAERS Safety Report 22220884 (Version 2)
Quarter: 2023Q2

REPORT INFORMATION
  Report Type: Other
  Country: US (occurrence: US)
  Receive Date: 20230418
  Receipt Date: 20230428
  Transmission Date: 20230721
  Serious: Yes (Other)
  Sender: FDA-Public Use
  Company Number: US-ALVOGEN-2023091130

PATIENT
  Sex: Female

DRUGS (1)
  1. MINOCYCLINE [Suspect]
     Active Substance: MINOCYCLINE HYDROCHLORIDE
     Indication: Confluent and reticulate papillomatosis
     Dosage: FOR 2 MONTHS.

REACTIONS (5)
  - Papilloedema [Unknown]
  - Optic atrophy [Unknown]
  - Intracranial pressure increased [Unknown]
  - Idiopathic intracranial hypertension [Unknown]
  - Off label use [Unknown]
